FAERS Safety Report 4593022-1 (Version None)
Quarter: 2005Q1

REPORT INFORMATION
  Report Type: 
  Country: None (occurrence: None)
  Receive Date: 20050228
  Receipt Date: 20050218
  Transmission Date: 20050727
  Serious: Yes (Life-Threatening)
  Sender: FDA-Public Use
  Company Number: FR-ABBOTT-05P-056-0291626-00

PATIENT
  Age: 6 Week
  Sex: Male

DRUGS (3)
  1. SEVORANE LIQUID FOR INHALATION [Suspect]
     Indication: ANAESTHESIA
     Dosage: NOT REPORTED
     Route: 055
     Dates: start: 20050202, end: 20050202
  2. NITRIC OXIDE [Concomitant]
     Indication: DRUG USE FOR UNKNOWN INDICATION
     Dosage: NOT REPORTED, NOT REPORTED, NOT REPORTED
  3. NITRIC OXIDE [Concomitant]
     Dosage: INCREASED, NOT REPORTED, NOT REPORTED

REACTIONS (3)
  - HYPOTENSION [None]
  - OXYGEN SATURATION DECREASED [None]
  - RESPIRATORY DISTRESS [None]
